FAERS Safety Report 17074773 (Version 1)
Quarter: 2019Q4

REPORT INFORMATION
  Report Type: Spontaneous
  Country: JP (occurrence: JP)
  Receive Date: 20191126
  Receipt Date: 20191126
  Transmission Date: 20200122
  Serious: Yes (Hospitalization)
  Sender: FDA-Public Use
  Company Number: JP-ABBVIE-19K-087-2949853-00

PATIENT
  Age: 80 Year

DRUGS (1)
  1. MAVIRET [Suspect]
     Active Substance: GLECAPREVIR\PIBRENTASVIR
     Indication: HEPATIC CIRRHOSIS
     Route: 048
     Dates: start: 20190628

REACTIONS (4)
  - Abdominal pain [Unknown]
  - Blood bilirubin increased [Unknown]
  - Bile duct stone [Recovered/Resolved]
  - Jaundice cholestatic [Unknown]

NARRATIVE: CASE EVENT DATE: 20190927
